FAERS Safety Report 4964394-0 (Version None)
Quarter: 2006Q1

REPORT INFORMATION
  Report Type: 
  Country: None (occurrence: None)
  Receive Date: 20060331
  Receipt Date: 20060315
  Transmission Date: 20060701
  Serious: Yes (Other)
  Sender: FDA-Public Use
  Company Number: GB200602000582

PATIENT
  Age: 13 Year
  Sex: Male
  Weight: 34.1 kg

DRUGS (16)
  1. STRATTERA [Suspect]
     Indication: ATTENTION DEFICIT/HYPERACTIVITY DISORDER
     Dosage: SEE IMAGE
     Dates: start: 20051201, end: 20051201
  2. STRATTERA [Suspect]
     Indication: ATTENTION DEFICIT/HYPERACTIVITY DISORDER
     Dosage: SEE IMAGE
     Dates: start: 20060130, end: 20060202
  3. STRATTERA [Suspect]
     Indication: ATTENTION DEFICIT/HYPERACTIVITY DISORDER
     Dosage: SEE IMAGE
  4. STRATTERA [Suspect]
     Indication: ATTENTION DEFICIT/HYPERACTIVITY DISORDER
     Dosage: SEE IMAGE
  5. STRATTERA [Suspect]
     Indication: ATTENTION DEFICIT/HYPERACTIVITY DISORDER
     Dosage: SEE IMAGE
  6. PIZOTIFEN (PIZOTIFEN) [Concomitant]
  7. BRICANYL [Concomitant]
  8. PANTOTHENATE, CYANOCOBALAMIN, NICOTINAMIDE [Concomitant]
  9. OMEGA 3 (FISH OIL) [Concomitant]
  10. ZAFIRLUKAST (ZAFIRLUKAST) TABLET [Concomitant]
  11. SYMBICORT TURBUHALER ^ASTRAZENECA^ (BUDESONIDE, FORMOTEROL FUMARATE) [Concomitant]
  12. FORMOTEROL (FORMOTEROL) [Concomitant]
  13. . [Concomitant]
  14. . [Concomitant]
  15. . [Concomitant]
  16. . [Concomitant]

REACTIONS (15)
  - ABDOMINAL DISCOMFORT [None]
  - AGITATION [None]
  - ANXIETY [None]
  - CHILLS [None]
  - DIFFICULTY IN WALKING [None]
  - FATIGUE [None]
  - HEADACHE [None]
  - INFLUENZA LIKE ILLNESS [None]
  - LIVER TENDERNESS [None]
  - LYMPHADENOPATHY [None]
  - MUSCLE SPASMS [None]
  - MUSCULOSKELETAL STIFFNESS [None]
  - NAUSEA [None]
  - SLEEP DISORDER [None]
  - SWELLING FACE [None]
